FAERS Safety Report 11682592 (Version 1)
Quarter: 2015Q4

REPORT INFORMATION
  Report Type: Spontaneous
  Country: US (occurrence: None)
  Receive Date: 20151028
  Receipt Date: 20151028
  Transmission Date: 20160304
  Serious: Yes (Hospitalization)
  Sender: FDA-Public Use
  Company Number: None

PATIENT
  Age: 76 Year
  Sex: Female
  Weight: 52.16 kg

DRUGS (1)
  1. METFORMIN HYDROCHLORIDE. [Suspect]
     Active Substance: METFORMIN HYDROCHLORIDE
     Dates: end: 20151024

REACTIONS (7)
  - Abdominal distension [None]
  - Constipation [None]
  - Rectal haemorrhage [None]
  - Nausea [None]
  - Colonic abscess [None]
  - Disease progression [None]
  - Pelvic mass [None]

NARRATIVE: CASE EVENT DATE: 20151024
